FAERS Safety Report 9596695 (Version 2)
Quarter: 2013Q4

REPORT INFORMATION
  Report Type: Report from Study
  Country: JP (occurrence: JP)
  Receive Date: 20131004
  Receipt Date: 20131212
  Transmission Date: 20140711
  Serious: Yes (Hospitalization, Other)
  Sender: FDA-Public Use
  Company Number: JP-ABBVIE-13P-087-1153018-00

PATIENT
  Age: 6 Year
  Sex: Female

DRUGS (49)
  1. HUMIRA [Suspect]
     Indication: JUVENILE IDIOPATHIC ARTHRITIS
     Route: 058
     Dates: start: 20121109, end: 20121123
  2. TOCILIZUMAB [Concomitant]
     Indication: JUVENILE IDIOPATHIC ARTHRITIS
     Dates: start: 20121225, end: 20121225
  3. TOCILIZUMAB [Concomitant]
     Dates: start: 20130103, end: 20130103
  4. TOCILIZUMAB [Concomitant]
     Dates: start: 20130111, end: 20130125
  5. TOCILIZUMAB [Concomitant]
     Dates: start: 20130131, end: 20130131
  6. TOCILIZUMAB [Concomitant]
     Dates: start: 20130215, end: 20130301
  7. TOCILIZUMAB [Concomitant]
     Dates: start: 20130314, end: 20130314
  8. TOCILIZUMAB [Concomitant]
     Dates: start: 20130329, end: 20130329
  9. TOCILIZUMAB [Concomitant]
     Dates: start: 20130411
  10. METHOTREXATE [Concomitant]
     Indication: JUVENILE IDIOPATHIC ARTHRITIS
     Route: 048
  11. PREDNISOLONE [Concomitant]
     Indication: JUVENILE IDIOPATHIC ARTHRITIS
     Dosage: 7.5 MG DAILY
     Route: 048
     Dates: end: 20121123
  12. PREDNISOLONE [Concomitant]
     Dosage: 7.0 MG DAILY
     Dates: start: 20121124, end: 20121203
  13. PREDNISOLONE [Concomitant]
     Dosage: 16 MG DAILY
     Dates: start: 20121206, end: 20121209
  14. PREDNISOLONE [Concomitant]
     Dosage: 13 MG DAILY
     Dates: start: 20121213, end: 20121216
  15. PREDNISOLONE [Concomitant]
     Dosage: 13 MG DAILY
     Dates: start: 20121218, end: 20121218
  16. PREDNISOLONE [Concomitant]
     Dosage: 15 MG DAILY
     Dates: start: 20121222, end: 20130102
  17. PREDNISOLONE [Concomitant]
     Dosage: 14.5 MG DAILY
     Dates: start: 20130103, end: 20130117
  18. PREDNISOLONE [Concomitant]
     Dosage: 14 MG DAILY
     Dates: start: 20130118, end: 20130131
  19. PREDNISOLONE [Concomitant]
     Dosage: 13.5 MG DAILY
     Dates: start: 20130201, end: 20130218
  20. PREDNISOLONE [Concomitant]
     Dosage: 13 MG DAILY
     Dates: start: 20130219, end: 20130304
  21. PREDNISOLONE [Concomitant]
     Dosage: 12.5 MG DAILY
     Dates: start: 20130305, end: 20130318
  22. PREDNISOLONE [Concomitant]
     Dosage: 12 MG DAILY
     Dates: start: 20130319, end: 20130415
  23. PREDNISOLONE [Concomitant]
     Dosage: 11.5 MG DAILY
     Dates: start: 20130416
  24. IBUPROFEN [Concomitant]
     Indication: JUVENILE IDIOPATHIC ARTHRITIS
     Dosage: 400 MG DAILY
     Route: 048
     Dates: end: 20130214
  25. IBUPROFEN [Concomitant]
     Dosage: 200 MG DAILY
     Dates: start: 20130215, end: 20130304
  26. IBUPROFEN [Concomitant]
     Dosage: 100 MG DAILY
     Dates: start: 20130305, end: 20130314
  27. TACROLIMUS [Concomitant]
     Indication: JUVENILE IDIOPATHIC ARTHRITIS
     Dosage: 1.5 MG DAILY
     Route: 048
     Dates: start: 20120907, end: 20121202
  28. TACROLIMUS [Concomitant]
     Dosage: 1.5 MG DAILY
     Dates: start: 20121206, end: 20121209
  29. TACROLIMUS [Concomitant]
     Dosage: 1.5 MG DAILY
     Dates: start: 20121213, end: 20121218
  30. TACROLIMUS [Concomitant]
     Dosage: 1.5 MG DAILY
     Dates: start: 20121220
  31. METHYLPREDNISOLONE SODIUM SUCCINATE [Concomitant]
     Indication: JUVENILE IDIOPATHIC ARTHRITIS
     Dates: start: 20121203, end: 20121205
  32. METHYLPREDNISOLONE SODIUM SUCCINATE [Concomitant]
     Dates: start: 20121210, end: 20121212
  33. METHYLPREDNISOLONE SODIUM SUCCINATE [Concomitant]
     Dates: start: 201212, end: 20121221
  34. HEPARIN SODIUM [Concomitant]
     Indication: STEROID THERAPY
     Dosage: 2000 U DAILY
     Route: 050
     Dates: start: 20121203, end: 20121206
  35. HEPARIN SODIUM [Concomitant]
     Dosage: 2000 U DAILY
     Dates: start: 20121210, end: 20121213
  36. HEPARIN SODIUM [Concomitant]
     Dosage: 2000 U DAILY
     Dates: start: 20121217, end: 20121222
  37. GLUCOSE/SODIUM CHLORIDE/POTASSIUM CHLORIDE/L-SODIUM LACTATE [Concomitant]
     Indication: PRODUCT USED FOR UNKNOWN INDICATION
     Dosage: 20 ML/HOUR
     Route: 042
     Dates: start: 20121204, end: 20121206
  38. GLUCOSE/SODIUM CHLORIDE/POTASSIUM CHLORIDE/L-SODIUM LACTATE [Concomitant]
     Dosage: 20 ML/HOUR
     Dates: start: 201212, end: 201212
  39. GLUCOSE/SODIUM CHLORIDE/POTASSIUM CHLORIDE/L-SODIUM LACTATE [Concomitant]
     Dates: start: 20121217, end: 20121222
  40. GLUCOSE/SODIUM CHLORIDE/POTASSIUM CHLORIDE/L-SODIUM LACTATE [Concomitant]
     Dosage: 50 ML/HOUR
     Dates: start: 20121128, end: 20121202
  41. GLUCOSE/SODIUM CHLORIDE/POTASSIUM CHLORIDE/L-SODIUM LACTATE [Concomitant]
     Dosage: 20 ML/HOUR
     Dates: start: 20121202, end: 20121203
  42. ALFACALCIDOL [Concomitant]
     Indication: PRODUCT USED FOR UNKNOWN INDICATION
     Dosage: 0.15 MCG DAILY
     Route: 048
  43. FOLIC ACID [Concomitant]
     Indication: PROPHYLAXIS
     Route: 048
  44. FOLIC ACID [Concomitant]
     Indication: FOLATE DEFICIENCY
  45. FAMOTIDINE [Concomitant]
     Indication: PRODUCT USED FOR UNKNOWN INDICATION
     Dosage: 10 MG DAILY
     Route: 048
     Dates: end: 20121215
  46. FAMOTIDINE [Concomitant]
     Dosage: 10 MG DAILY
     Dates: start: 20121228
  47. ACICLOVIR [Concomitant]
     Indication: VARICELLA
     Dosage: 1600 MG DAILY
     Route: 048
     Dates: start: 20130304, end: 20130317
  48. ACICLOVIR [Concomitant]
     Indication: PROPHYLAXIS
  49. DEXAMETHASONE PALMITATE [Concomitant]
     Indication: JUVENILE IDIOPATHIC ARTHRITIS
     Dates: start: 20121129, end: 20121129

REACTIONS (8)
  - Gastric mucosal lesion [Recovered/Resolved]
  - Osteonecrosis [Not Recovered/Not Resolved]
  - Arthritis [Recovering/Resolving]
  - Sepsis [Recovered/Resolved]
  - Sepsis [Recovered/Resolved]
  - Asthma [Recovered/Resolved]
  - Gastroduodenal ulcer [Recovered/Resolved]
  - Dermatitis atopic [Recovering/Resolving]
